FAERS Safety Report 5596213-6 (Version None)
Quarter: 2008Q1

REPORT INFORMATION
  Report Type: 
  Country: None (occurrence: None)
  Receive Date: 20080118
  Receipt Date: 20080110
  Transmission Date: 20080703
  Serious: Yes (Other)
  Sender: FDA-Public Use
  Company Number: DE-ABBOTT-08P-062-0433614-00

PATIENT
  Age: 28 Year
  Sex: Male

DRUGS (4)
  1. VALPROATE SODIUM [Suspect]
     Indication: EPILEPSY
     Route: 065
     Dates: start: 19960101
  2. LEVETIRACETAM [Suspect]
     Indication: EPILEPSY
     Route: 065
     Dates: start: 20060101
  3. LEVETIRACETAM [Suspect]
     Route: 065
  4. LAMOTRIGINE [Concomitant]
     Indication: EPILEPSY

REACTIONS (2)
  - CONVULSION [None]
  - ENCEPHALOPATHY [None]
